FAERS Safety Report 6236659-6 (Version None)
Quarter: 2009Q2

REPORT INFORMATION
  Report Type: 
  Country: None (occurrence: None)
  Receive Date: 20090619
  Receipt Date: 20081205
  Transmission Date: 20091009
  Serious: No
  Sender: FDA-Public Use
  Company Number: US-ASTRAZENECA-2008UW27121

PATIENT
  Age: 71 Year
  Sex: Female
  Weight: 68 kg

DRUGS (4)
  1. ATACAND HCT [Suspect]
     Indication: HYPERTENSION
     Dosage: 32/12.5
     Route: 048
  2. ATACAND HCT [Suspect]
     Dosage: 16/12.5 TWICE A DAY
     Route: 048
  3. NEXIUM [Concomitant]
     Route: 048
  4. PREMARIN [Concomitant]

REACTIONS (5)
  - ABDOMINAL DISCOMFORT [None]
  - ALOPECIA [None]
  - BLOOD PRESSURE INCREASED [None]
  - DYSPEPSIA [None]
  - NAUSEA [None]
